FAERS Safety Report 10535622 (Version 1)
Quarter: 2014Q4

REPORT INFORMATION
  Report Type: Spontaneous
  Country: US (occurrence: US)
  Receive Date: 20141022
  Receipt Date: 20141022
  Transmission Date: 20150529
  Serious: No
  Sender: FDA-Public Use
  Company Number: US-RECKITT BENCKISER PHARMACEUTICAL, INC-RB-58774-2013

PATIENT

DRUGS (2)
  1. SUBOXONE [Suspect]
     Active Substance: BUPRENORPHINE HYDROCHLORIDE\NALOXONE HYDROCHLORIDE
     Dosage: SUBOXONE FILM; WEANING SELF OFF OF MEDICATION
     Route: 065
     Dates: start: 2012, end: 201302
  2. SUBOXONE [Suspect]
     Active Substance: BUPRENORPHINE HYDROCHLORIDE\NALOXONE HYDROCHLORIDE
     Indication: PRODUCT USED FOR UNKNOWN INDICATION
     Dosage: SUBOXONE FILM
     Route: 065
     Dates: start: 201209, end: 2012

REACTIONS (7)
  - Sedation [Unknown]
  - Drug diversion [Recovered/Resolved]
  - Constipation [Unknown]
  - Underdose [Recovered/Resolved]
  - Poisoning [Unknown]
  - Euphoric mood [Unknown]
  - Lethargy [Unknown]

NARRATIVE: CASE EVENT DATE: 2012
